FAERS Safety Report 24753478 (Version 1)
Quarter: 2024Q4

REPORT INFORMATION
  Report Type: Spontaneous
  Country: US (occurrence: None)
  Receive Date: 20241218
  Receipt Date: 20241218
  Transmission Date: 20250115
  Serious: Yes (Hospitalization)
  Sender: Public
  Company Number: None

PATIENT
  Age: 58 Year
  Sex: Male
  Weight: 67.4 kg

DRUGS (1)
  1. BREYANZI [Suspect]
     Active Substance: LISOCABTAGENE MARALEUCEL
     Indication: Diffuse large B-cell lymphoma

REACTIONS (3)
  - Neurotoxicity [None]
  - Encephalopathy [None]
  - Cytokine release syndrome [None]

NARRATIVE: CASE EVENT DATE: 20240817
